FAERS Safety Report 15030592 (Version 1)
Quarter: 2018Q2

REPORT INFORMATION
  Report Type: Spontaneous
  Country: JP (occurrence: JP)
  Receive Date: 20180619
  Receipt Date: 20180619
  Transmission Date: 20180711
  Serious: Yes (Other)
  Sender: FDA-Public Use
  Company Number: GXJP2018JP001146

PATIENT
  Sex: Female

DRUGS (3)
  1. RIFAMPICIN CAPSULES [Suspect]
     Active Substance: RIFAMPIN
     Indication: MYCOBACTERIUM AVIUM COMPLEX INFECTION
     Dosage: UNK
     Route: 048
     Dates: start: 200701
  2. CRAVIT [Concomitant]
     Active Substance: LEVOFLOXACIN
     Indication: MYCOBACTERIUM AVIUM COMPLEX INFECTION
     Dosage: UNK
     Route: 065
     Dates: start: 200701
  3. KLARICID [Concomitant]
     Active Substance: CLARITHROMYCIN
     Indication: MYCOBACTERIUM AVIUM COMPLEX INFECTION
     Dosage: UNK
     Route: 065
     Dates: start: 200701

REACTIONS (5)
  - Pyrexia [Recovering/Resolving]
  - Lupus-like syndrome [Recovering/Resolving]
  - Purpura [Recovering/Resolving]
  - Thrombocytopenia [Recovering/Resolving]
  - Malaise [Recovering/Resolving]

NARRATIVE: CASE EVENT DATE: 201608
